FAERS Safety Report 5413217-4 (Version None)
Quarter: 2007Q3

REPORT INFORMATION
  Report Type: 
  Country: None (occurrence: None)
  Receive Date: 20070814
  Receipt Date: 20070809
  Transmission Date: 20080115
  Serious: Yes (Hospitalization)
  Sender: FDA-Public Use
  Company Number: PHRM2007FR01813

PATIENT
  Age: 78 Year
  Sex: Female

DRUGS (6)
  1. COTAREG [Suspect]
     Indication: HYPERTENSION
     Dosage: 1 DF, QD
     Route: 048
     Dates: start: 20050101, end: 20070705
  2. LEVOTHYROXINE SODIUM [Suspect]
     Indication: HYPOTHYROIDISM
     Route: 048
  3. DAFLON [Suspect]
     Indication: VENOUS STASIS
     Dosage: 6 TABS/DAY
     Route: 048
     Dates: end: 20070701
  4. LIPANTHYL [Suspect]
     Indication: DYSLIPIDAEMIA
     Dosage: 145 MG, QD
     Route: 048
  5. TANAKAN [Suspect]
     Dosage: 40 MG, TID
     Route: 048
  6. ART 50 [Suspect]
     Indication: OSTEOARTHRITIS
     Dosage: 50 MG, BID
     Route: 048
     Dates: end: 20070701

REACTIONS (3)
  - ERYTHEMA [None]
  - PEMPHIGOID [None]
  - PRURITUS [None]
